FAERS Safety Report 4470225-8 (Version None)
Quarter: 2004Q4

REPORT INFORMATION
  Report Type: 
  Country: None (occurrence: None)
  Receive Date: 20041008
  Receipt Date: 20030605
  Transmission Date: 20050328
  Serious: Yes (Hospitalization)
  Sender: FDA-Public Use
  Company Number: US-MERCK-0306USA00875

PATIENT
  Age: 42 Year
  Sex: Female
  Weight: 98 kg

DRUGS (16)
  1. BENZTROPINE MESYLATE [Concomitant]
     Route: 048
     Dates: start: 20000508
  2. TAGAMET [Concomitant]
     Route: 048
     Dates: start: 20000508
  3. CLONIDINE HYDROCHLORIDE [Concomitant]
     Route: 048
     Dates: start: 20001027
  4. HUMIBID DM [Concomitant]
     Route: 048
     Dates: start: 20010108
  5. DEPAKOTE [Concomitant]
     Route: 048
     Dates: start: 20011027
  6. DEPAKOTE [Concomitant]
     Route: 048
     Dates: start: 20011027
  7. DEPAKOTE [Concomitant]
     Route: 048
     Dates: start: 20011027
  8. COLACE [Concomitant]
     Route: 048
     Dates: start: 20010111
  9. LASIX [Concomitant]
     Route: 048
     Dates: start: 20000508
  10. HALDOL [Concomitant]
     Route: 048
     Dates: start: 20001027
  11. NYSTATIN [Concomitant]
     Route: 061
     Dates: start: 20010108
  12. PHENERGAN TABLETS/SUPPOSITORIES [Concomitant]
     Route: 048
     Dates: start: 20000508
  13. VIOXX [Suspect]
     Route: 048
     Dates: start: 20010101
  14. ZOLOFT [Concomitant]
     Route: 048
     Dates: start: 20001027
  15. SEPTRA DS [Concomitant]
     Route: 048
     Dates: start: 20010108
  16. AMBIEN [Concomitant]
     Route: 048
     Dates: start: 20001027

REACTIONS (11)
  - ABDOMINAL PAIN [None]
  - ANAEMIA [None]
  - ASTHMA [None]
  - BRONCHITIS ACUTE [None]
  - CONSTIPATION [None]
  - DYSPHAGIA [None]
  - DYSTONIA [None]
  - GASTROOESOPHAGEAL REFLUX DISEASE [None]
  - HIATUS HERNIA [None]
  - OESOPHAGITIS [None]
  - UPPER RESPIRATORY TRACT INFECTION [None]
